FAERS Safety Report 8734421 (Version 2)
Quarter: 2012Q4

REPORT INFORMATION
  Report Type: 
  Country: US (occurrence: US)
  Receive Date: 20120821
  Receipt Date: 20120906
  Transmission Date: 20130627
  Serious: Yes (Other)
  Sender: FDA-Public Use
  Company Number: US-PFIZER INC-2012200303

PATIENT
  Age: 44 Year
  Sex: Male
  Weight: 63.49 kg

DRUGS (8)
  1. NEURONTIN [Suspect]
     Indication: NEURALGIA
     Dosage: 300 mg, 3x/day
     Route: 048
     Dates: start: 200808, end: 2008
  2. NEURONTIN [Suspect]
     Dosage: 600 mg, 3x/day
     Route: 048
     Dates: start: 2008
  3. CHANTIX [Suspect]
     Indication: SMOKING CESSATION THERAPY
     Dosage: 0.5 mg, 1x/day
     Route: 048
     Dates: start: 20120728
  4. CHANTIX [Suspect]
     Dosage: 0.5 mg, 2x/day
     Route: 048
  5. CHANTIX [Suspect]
     Dosage: 1 mg, 2x/day
     Route: 048
  6. PERCOCET [Concomitant]
     Indication: PAIN
     Dosage: UNK
  7. METHYL SALICYLATE [Concomitant]
     Indication: MUSCLE RELAXANT THERAPY
     Dosage: UNK
  8. FENTANYL [Concomitant]
     Indication: NEURALGIA
     Dosage: UNK

REACTIONS (4)
  - Rash [Recovered/Resolved]
  - Feeling abnormal [Recovered/Resolved]
  - Insomnia [Recovered/Resolved]
  - Abnormal behaviour [Recovered/Resolved]
